FAERS Safety Report 5207093-2 (Version None)
Quarter: 2007Q1

REPORT INFORMATION
  Report Type: 
  Country: None (occurrence: None)
  Receive Date: 20070110
  Receipt Date: 20070105
  Transmission Date: 20070707
  Serious: Yes (Other)
  Sender: FDA-Public Use
  Company Number: S07-USA-00062-01

PATIENT
  Age: 27 Year
  Sex: Male

DRUGS (3)
  1. CELEXA [Suspect]
     Indication: OBSESSIVE-COMPULSIVE DISORDER
     Dosage: 40 MG QD PO
     Route: 048
     Dates: start: 20050201, end: 20050101
  2. RISPERDAL [Suspect]
     Indication: SCHIZOAFFECTIVE DISORDER
     Dates: start: 20031201, end: 20050101
  3. RISPERDAL [Suspect]
     Indication: SCHIZOAFFECTIVE DISORDER
     Dosage: 37.5 MG IM
     Route: 030
     Dates: start: 20031201, end: 20050101

REACTIONS (5)
  - DRUG INTERACTION [None]
  - NERVOUSNESS [None]
  - NO THERAPEUTIC RESPONSE [None]
  - RESTLESSNESS [None]
  - TARDIVE DYSKINESIA [None]
